FAERS Safety Report 9070490 (Version 4)
Quarter: 2013Q3

REPORT INFORMATION
  Report Type: Spontaneous
  Country: US (occurrence: US)
  Receive Date: 20130215
  Receipt Date: 20130807
  Transmission Date: 20140515
  Serious: Yes (Death, Hospitalization)
  Sender: FDA-Public Use
  Company Number: US-INCYTE CORPORATION-2013IN000294

PATIENT
  Age: 53 Year
  Sex: Male

DRUGS (10)
  1. JAKAFI [Suspect]
     Indication: MYELOFIBROSIS
     Dosage: 15 MG, BID
     Route: 048
     Dates: start: 20130109, end: 20130220
  2. JAKAFI [Suspect]
     Dosage: 15 MG, BID
     Route: 048
     Dates: start: 201302
  3. ALLOPURINOL [Concomitant]
     Dosage: 1 DF, QD
  4. ACYCLOVIR [Concomitant]
     Dosage: 400 MG, BID
  5. ASPIRIN [Concomitant]
     Dosage: 81 MG, QD
  6. SYNTHROID [Concomitant]
     Dosage: 125 MG, QD
  7. COMPAZINE [Concomitant]
     Dosage: 10 MG, Q4H, PRN
  8. MAGNESIUM OXIDE [Concomitant]
     Dosage: 400 MG, QD
  9. PRILOSEC [Concomitant]
     Dosage: 20 MG, QD
  10. MULTIVITAMIN [Concomitant]
     Dosage: 1 DF, QD

REACTIONS (5)
  - Acute myeloid leukaemia [Fatal]
  - Chest pain [Unknown]
  - Dyspnoea [Unknown]
  - Haemoptysis [Fatal]
  - Thrombocytopenia [Fatal]
